FAERS Safety Report 4989221-7 (Version None)
Quarter: 2006Q2

REPORT INFORMATION
  Report Type: 
  Country: None (occurrence: None)
  Receive Date: 20060425
  Receipt Date: 20060411
  Transmission Date: 20061013
  Serious: Yes (Other)
  Sender: FDA-Public Use
  Company Number: 2006052014

PATIENT
  Sex: Female
  Weight: 86.1834 kg

DRUGS (6)
  1. GENOTROPIN [Suspect]
     Indication: GROWTH HORMONE DEFICIENCY
     Dosage: 0.4 MG (0.4 MG DAILY INTERVAL: EVERY DAY) SUBCUTANEOUS
     Route: 058
     Dates: start: 20060201
  2. ALPRAZOLAM [Suspect]
     Indication: ANXIETY
     Dosage: 0.25 MG (0.25 MG, DAILY INTERVAL : EVERY DAY) ORAL
     Route: 048
  3. ALPRAZOLAM [Suspect]
     Indication: INSOMNIA
     Dosage: 0.25 MG (0.25 MG, DAILY INTERVAL : EVERY DAY) ORAL
     Route: 048
  4. PROVERA [Suspect]
     Indication: HORMONE REPLACEMENT THERAPY
     Dosage: 5 MG (5 MG, ONCE DAILY), ORAL
     Route: 048
     Dates: start: 19860101
  5. SYNTHROID [Concomitant]
  6. ESTRACE [Concomitant]

REACTIONS (7)
  - ANXIETY [None]
  - DRUG DOSE OMISSION [None]
  - DRUG INEFFECTIVE [None]
  - FATIGUE [None]
  - HYPERTENSION [None]
  - HYPOTHYROIDISM [None]
  - PITUITARY TUMOUR BENIGN [None]
